FAERS Safety Report 9434989 (Version 3)
Quarter: 2013Q3

REPORT INFORMATION
  Report Type: Spontaneous
  Country: IT (occurrence: IT)
  Receive Date: 20130801
  Receipt Date: 20130828
  Transmission Date: 20140515
  Serious: Yes (Other)
  Sender: FDA-Public Use
  Company Number: PHHY2013IT080857

PATIENT
  Sex: Female

DRUGS (1)
  1. GILENYA [Suspect]
     Dosage: 0.5 MG, QD
     Route: 048
     Dates: start: 20120713, end: 20130122

REACTIONS (6)
  - Multiple sclerosis relapse [Unknown]
  - Asthenia [Unknown]
  - Ataxia [Unknown]
  - Paraparesis [Unknown]
  - Central nervous system lesion [Unknown]
  - Optic neuritis [Unknown]
